FAERS Safety Report 8621341-8 (Version None)
Quarter: 2012Q3

REPORT INFORMATION
  Report Type: 
  Country: None (occurrence: None)
  Receive Date: 20120824
  Receipt Date: 20120813
  Transmission Date: 20120928
  Serious: Yes (Other)
  Sender: FDA-Public Use
  Company Number: CA-ROCHE-1103093

PATIENT
  Sex: Male

DRUGS (4)
  1. VENTOLIN [Concomitant]
  2. ZENHALE [Concomitant]
  3. SINGULAIR [Concomitant]
  4. XOLAIR [Suspect]
     Indication: ASTHMA
     Route: 058
     Dates: start: 20120517

REACTIONS (1)
  - ARTHROPOD STING [None]
